FAERS Safety Report 9498663 (Version 1)
Quarter: 2013Q3

REPORT INFORMATION
  Report Type: Spontaneous
  Country: US (occurrence: US)
  Receive Date: 20130904
  Receipt Date: 20130904
  Transmission Date: 20140515
  Serious: No
  Sender: FDA-Public Use
  Company Number: US-PFIZER INC-2013255159

PATIENT
  Age: 63 Year
  Sex: Male
  Weight: 99.77 kg

DRUGS (3)
  1. CHANTIX [Suspect]
     Indication: SMOKING CESSATION THERAPY
     Dosage: 0.5 MG, 1X/DAY
     Route: 048
     Dates: start: 201308, end: 201308
  2. CHANTIX [Suspect]
     Dosage: UNK
     Route: 048
     Dates: start: 201308, end: 20130831
  3. TYLENOL [Concomitant]
     Dosage: UNK

REACTIONS (4)
  - Abnormal behaviour [Recovering/Resolving]
  - Mood altered [Recovering/Resolving]
  - Nightmare [Recovering/Resolving]
  - Insomnia [Recovering/Resolving]
